FAERS Safety Report 5484655-9 (Version None)
Quarter: 2007Q4

REPORT INFORMATION
  Report Type: 
  Country: None (occurrence: None)
  Receive Date: 20071012
  Receipt Date: 20071001
  Transmission Date: 20080405
  Serious: Yes (Other)
  Sender: FDA-Public Use
  Company Number: US-PFIZER INC-2007076939

PATIENT
  Sex: Female
  Weight: 71.2 kg

DRUGS (1)
  1. CHANTIX [Suspect]
     Indication: SMOKING CESSATION THERAPY
     Route: 048
     Dates: start: 20070909, end: 20070101

REACTIONS (3)
  - DYSPHAGIA [None]
  - ORAL MUCOSAL BLISTERING [None]
  - SWOLLEN TONGUE [None]
